FAERS Safety Report 16865781 (Version 3)
Quarter: 2025Q4

REPORT INFORMATION
  Report Type: Spontaneous
  Country: EU (occurrence: EU)
  Receive Date: 20190930
  Receipt Date: 20251212
  Transmission Date: 20260117
  Serious: Yes (Hospitalization, Other)
  Sender: RANBAXY
  Company Number: EU-SUN PHARMACEUTICAL INDUSTRIES LTD-2019R1-221432

PATIENT
  Age: 60 Year
  Sex: Female

DRUGS (15)
  1. DEXAMETHASONE [Suspect]
     Active Substance: DEXAMETHASONE
     Indication: Chemotherapy
     Dosage: 12 MILLIGRAM, ONCE A DAY (1-7 DAY)
     Route: 065
  2. AMOXICILLIN\CLAVULANIC ACID [Suspect]
     Active Substance: AMOXICILLIN\CLAVULANIC ACID
     Indication: Chronic lymphocytic leukaemia
     Dosage: 2000 MILLIGRAM, ONCE A DAY
     Route: 065
  3. AMOXICILLIN\CLAVULANIC ACID [Suspect]
     Active Substance: AMOXICILLIN\CLAVULANIC ACID
     Route: 065
  4. FLUCONAZOLE [Suspect]
     Active Substance: FLUCONAZOLE
     Indication: Product used for unknown indication
     Dosage: 100 MILLIGRAM, ONCE A DAY
     Route: 065
  5. FLUCONAZOLE [Suspect]
     Active Substance: FLUCONAZOLE
     Dosage: 100 MILLIGRAM, ONCE A DAY
     Route: 065
  6. CIPROFLOXACIN [Suspect]
     Active Substance: CIPROFLOXACIN
     Indication: Product used for unknown indication
     Dosage: 1000 MILLIGRAM, ONCE A DAY
     Route: 065
  7. RITUXIMAB [Suspect]
     Active Substance: RITUXIMAB
     Indication: Chemotherapy
     Dosage: 650 MILLIGRAM, QD (DAY 1)
     Route: 065
  8. RITUXIMAB [Suspect]
     Active Substance: RITUXIMAB
     Dosage: 850 MILLIGRAM, QD (DAY 1)
     Route: 065
  9. CYCLOPHOSPHAMIDE [Suspect]
     Active Substance: CYCLOPHOSPHAMIDE
     Indication: Chemotherapy
     Dosage: 425 MILLIGRAM, ONCE A DAY (DAY 1-3)
     Route: 065
  10. CYCLOPHOSPHAMIDE [Suspect]
     Active Substance: CYCLOPHOSPHAMIDE
     Dosage: 1000 MILLIGRAM, ONCE A DAY (DAY 1)
     Route: 065
  11. CYCLOPHOSPHAMIDE [Suspect]
     Active Substance: CYCLOPHOSPHAMIDE
     Dosage: 1300 MILLIGRAM, ONCE A DAY (DAY 1)
     Route: 065
  12. CYCLOPHOSPHAMIDE [Suspect]
     Active Substance: CYCLOPHOSPHAMIDE
     Dosage: 400 MILLIGRAM, ONCE A DAY (DAY 1-3)
     Route: 065
  13. FLUDARABINE [Suspect]
     Active Substance: FLUDARABINE PHOSPHATE
     Indication: Chemotherapy
     Route: 065
  14. FILGRASTIM [Suspect]
     Active Substance: FILGRASTIM
     Indication: Product used for unknown indication
     Route: 065
  15. FILGRASTIM [Suspect]
     Active Substance: FILGRASTIM
     Route: 058

REACTIONS (16)
  - Drug ineffective [Unknown]
  - Chronic lymphocytic leukaemia [Unknown]
  - Blood disorder [Unknown]
  - Pulmonary embolism [Unknown]
  - Breath sounds abnormal [Unknown]
  - Chest pain [Unknown]
  - Dyspnoea exertional [Unknown]
  - Malaise [Unknown]
  - Pyrexia [Unknown]
  - Tachycardia [Unknown]
  - Steroid diabetes [Unknown]
  - Chronic lymphocytic leukaemia recurrent [Unknown]
  - Fatigue [Unknown]
  - Heart rate increased [Unknown]
  - Haemolytic anaemia [Unknown]
  - Neutropenia [Unknown]
